FAERS Safety Report 20571996 (Version 1)
Quarter: 2022Q1

REPORT INFORMATION
  Report Type: Spontaneous
  Country: US (occurrence: None)
  Receive Date: 20220308
  Receipt Date: 20220308
  Transmission Date: 20220424
  Serious: No
  Sender: FDA-Public Use
  Company Number: None

PATIENT
  Age: 31 Year
  Sex: Male
  Weight: 103.95 kg

DRUGS (1)
  1. NIRMATRELVIR\RITONAVIR [Suspect]
     Active Substance: NIRMATRELVIR\RITONAVIR
     Dosage: FREQUENCY : TWICE A DAY;?
     Route: 002
     Dates: start: 20220303, end: 20220308

REACTIONS (2)
  - Incorrect dose administered [None]
  - Product dose omission issue [None]

NARRATIVE: CASE EVENT DATE: 20220304
